FAERS Safety Report 8859491 (Version 1)
Quarter: 2012Q4

REPORT INFORMATION
  Report Type: 
  Country: US (occurrence: US)
  Receive Date: 20121024
  Receipt Date: 20121024
  Transmission Date: 20130627
  Serious: Yes (Other)
  Sender: FDA-Public Use
  Company Number: PHEH2012US020655

PATIENT
  Sex: Male

DRUGS (9)
  1. DIOVAN [Suspect]
     Dosage: 1 DF(320 mg), daily
     Route: 048
  2. IRON [Concomitant]
  3. LABETALOL [Concomitant]
  4. ZOLOFT [Concomitant]
  5. METFORMIN [Concomitant]
  6. LIPITOR [Concomitant]
  7. POTASSIUM [Concomitant]
  8. JANUVIA [Concomitant]
  9. ASPIRIN [Concomitant]

REACTIONS (5)
  - Arterial occlusive disease [Unknown]
  - Myocardial infarction [Unknown]
  - Renal injury [Unknown]
  - Type 2 diabetes mellitus [Unknown]
  - Blood cholesterol increased [Unknown]
